FAERS Safety Report 10231102 (Version 2)
Quarter: 2014Q3

REPORT INFORMATION
  Report Type: Spontaneous
  Country: US (occurrence: US)
  Receive Date: 20140611
  Receipt Date: 20140709
  Transmission Date: 20150326
  Serious: No
  Sender: FDA-Public Use
  Company Number: US-ROXANE LABORATORIES, INC.-2014-RO-00921RO

PATIENT
  Sex: Male

DRUGS (1)
  1. LACTULOSE SOLUTION USP, 10 G/15 ML [Suspect]
     Active Substance: LACTULOSE
     Indication: PRODUCT USED FOR UNKNOWN INDICATION
     Route: 065

REACTIONS (2)
  - Product quality issue [Unknown]
  - Therapeutic response increased [Unknown]
